FAERS Safety Report 25268978 (Version 2)
Quarter: 2025Q2

REPORT INFORMATION
  Report Type: Spontaneous
  Country: US (occurrence: US)
  Receive Date: 20250505
  Receipt Date: 20250505
  Transmission Date: 20250716
  Serious: Yes (Other)
  Sender: AMGEN
  Company Number: US-AMGEN-USASP2025085282

PATIENT
  Age: 60 Year
  Sex: Male

DRUGS (3)
  1. RITUXIMAB [Suspect]
     Active Substance: RITUXIMAB
     Indication: Chronic cutaneous lupus erythematosus
     Route: 065
  2. RITUXIMAB [Suspect]
     Active Substance: RITUXIMAB
     Indication: Polyarthritis
  3. HYDROXYCHLOROQUINE [Concomitant]
     Active Substance: HYDROXYCHLOROQUINE
     Dosage: 200 MILLIGRAM, BID
     Dates: start: 1998

REACTIONS (8)
  - Cutaneous lupus erythematosus [Recovering/Resolving]
  - Lichen planus [Recovering/Resolving]
  - Squamous cell carcinoma of skin [Unknown]
  - Colon cancer [Unknown]
  - Toxicity to various agents [Unknown]
  - Drug ineffective [Unknown]
  - Hypertension [Unknown]
  - Off label use [Unknown]
